FAERS Safety Report 10590007 (Version 1)
Quarter: 2014Q4

REPORT INFORMATION
  Report Type: Spontaneous
  Country: US (occurrence: None)
  Receive Date: 20141117
  Receipt Date: 20141117
  Transmission Date: 20150529
  Serious: No
  Sender: FDA-Public Use
  Company Number: None

PATIENT
  Age: 52 Year
  Sex: Female

DRUGS (1)
  1. SALONPAS PAIN RELIEF [Suspect]
     Active Substance: MENTHOL\METHYL SALICYLATE
     Indication: MYOSITIS
     Dosage: DIME SIZE, THREE TIMES DAILY, APPLIED TO A SURFACE, USUALLY THE SKIN
     Dates: start: 20141115, end: 20141115

REACTIONS (7)
  - Erythema [None]
  - Chemical injury [None]
  - Nausea [None]
  - Product formulation issue [None]
  - Skin burning sensation [None]
  - Pain [None]
  - Palpitations [None]

NARRATIVE: CASE EVENT DATE: 20141115
